FAERS Safety Report 15335990 (Version 1)
Quarter: 2018Q3

REPORT INFORMATION
  Report Type: Spontaneous
  Country: US (occurrence: US)
  Receive Date: 20180830
  Receipt Date: 20180830
  Transmission Date: 20181010
  Serious: Yes (Disabling, Other)
  Sender: FDA-Public Use
  Company Number: US-SPECTRUM PHARMACEUTICALS, INC.-18-B-US-00185

PATIENT
  Age: 72 Year
  Sex: Male
  Weight: 60 kg

DRUGS (9)
  1. AMLODIPINE [Concomitant]
     Active Substance: AMLODIPINE BESYLATE
     Indication: HYPERTENSION
     Dosage: 2.5 MG DAILY
     Route: 048
     Dates: start: 20150101
  2. BELEODAQ [Suspect]
     Active Substance: BELINOSTAT
     Indication: ANGIOIMMUNOBLASTIC T-CELL LYMPHOMA
     Dosage: UNK DAYS 1?5 EVERY 21 DAYS
     Route: 042
     Dates: start: 20170126, end: 20180709
  3. BELEODAQ [Suspect]
     Active Substance: BELINOSTAT
     Dosage: 25% DOSE REDUCTION (CYCLE 4 AND 5) DAYS 1?5 EVERY 21 DAYS
     Route: 042
  4. LEVOTHYROXINE. [Concomitant]
     Active Substance: LEVOTHYROXINE
     Indication: HYPOTHYROIDISM
     Dosage: 75 UG, DAILY
     Route: 048
     Dates: start: 20150101
  5. LOPERAMIDE [Concomitant]
     Active Substance: LOPERAMIDE
     Indication: DIARRHOEA
     Dosage: 2 MG, UNK
     Route: 048
     Dates: start: 20170101
  6. SENOKOT [Concomitant]
     Active Substance: SENNOSIDES
     Indication: CONSTIPATION
     Dosage: UNK
     Route: 048
     Dates: start: 20170101
  7. BELEODAQ [Suspect]
     Active Substance: BELINOSTAT
     Dosage: 25% DOSE REDUCTION (CYCLE 7 TO 21) DAYS 1?5 EVERY 21 DAYS
     Route: 042
  8. BELEODAQ [Suspect]
     Active Substance: BELINOSTAT
     Dosage: 50% DOSE REDUCTION (STARTING CYCLE 22) DAYS 1?5 EVERY 21 DAYS
     Route: 042
     Dates: end: 20180709
  9. BELEODAQ [Suspect]
     Active Substance: BELINOSTAT
     Dosage: 50% DOSE REDUCTION (DAYS 1?5 EVERY 21 DAYS)
     Route: 042

REACTIONS (5)
  - Tachycardia [Not Recovered/Not Resolved]
  - Neutropenia [Recovered/Resolved]
  - Transaminases increased [Not Recovered/Not Resolved]
  - Hyperbilirubinaemia [Not Recovered/Not Resolved]
  - Hypoxia [Not Recovered/Not Resolved]

NARRATIVE: CASE EVENT DATE: 201807
